FAERS Safety Report 17819219 (Version 1)
Quarter: 2020Q2

REPORT INFORMATION
  Report Type: Spontaneous
  Country: ES (occurrence: ES)
  Receive Date: 20200523
  Receipt Date: 20200523
  Transmission Date: 20200714
  Serious: Yes (Hospitalization)
  Sender: FDA-Public Use
  Company Number: ES-ACCORD-182964

PATIENT
  Age: 87 Year
  Sex: Female

DRUGS (6)
  1. SPIRONOLACTONE. [Suspect]
     Active Substance: SPIRONOLACTONE
     Indication: HYPERTENSION
     Dosage: 25 MG DAY
     Route: 048
     Dates: start: 20180509, end: 20200415
  2. CLINDAMYCIN. [Concomitant]
     Active Substance: CLINDAMYCIN
     Indication: CELLULITIS
     Dosage: 300 MG EVERY 12 HOURS
     Route: 048
     Dates: start: 20200225, end: 20200227
  3. SINTROM [Concomitant]
     Active Substance: ACENOCOUMAROL
     Indication: ATRIAL FIBRILLATION
     Dosage: SP, STRENGTH: 4 MG, 20 TABLETS
     Route: 048
     Dates: start: 20160205, end: 20200319
  4. ENALAPRIL [Concomitant]
     Active Substance: ENALAPRIL
     Indication: HYPERTENSION
     Route: 048
  5. SEGURIL [Interacting]
     Active Substance: FUROSEMIDE
     Indication: HYPERTENSION
     Dosage: 1/2 CP DAY, STRENGTH: 40 MG, 30 TABLETS
     Route: 048
     Dates: start: 20160229, end: 20200415
  6. CLINDAMYCIN. [Concomitant]
     Active Substance: CLINDAMYCIN
     Indication: CELLULITIS
     Route: 048
     Dates: start: 20200304, end: 20200309

REACTIONS (2)
  - Acute kidney injury [Recovering/Resolving]
  - Drug interaction [Unknown]

NARRATIVE: CASE EVENT DATE: 20200415
